FAERS Safety Report 6679268-7 (Version None)
Quarter: 2010Q2

REPORT INFORMATION
  Report Type: 
  Country: None (occurrence: None)
  Receive Date: 20100413
  Receipt Date: 20100401
  Transmission Date: 20101027
  Serious: Yes (Hospitalization)
  Sender: FDA-Public Use
  Company Number: DE-PFIZER INC-2010041478

PATIENT
  Age: 48 Year
  Sex: Female
  Weight: 59 kg

DRUGS (1)
  1. LYRICA [Suspect]
     Indication: ANXIETY
     Dosage: 75 MG, SINGLE
     Route: 048
     Dates: start: 20100317, end: 20100317

REACTIONS (4)
  - OROPHARYNGEAL BLISTERING [None]
  - PRURITUS [None]
  - TACHYCARDIA [None]
  - URTICARIA [None]
